FAERS Safety Report 13592485 (Version 2)
Quarter: 2017Q2

REPORT INFORMATION
  Report Type: Report from Study
  Country: US (occurrence: US)
  Receive Date: 20170530
  Receipt Date: 20170607
  Transmission Date: 20170830
  Serious: Yes (Other)
  Sender: FDA-Public Use
  Company Number: US-JNJFOC-20170527102

PATIENT
  Sex: Male

DRUGS (1)
  1. IMBRUVICA [Suspect]
     Active Substance: IBRUTINIB
     Indication: CHRONIC LYMPHOCYTIC LEUKAEMIA
     Dosage: 420 MG, QD
     Route: 048
     Dates: start: 20160805

REACTIONS (4)
  - Pleural effusion [Unknown]
  - Seasonal allergy [Not Recovered/Not Resolved]
  - Ear haemorrhage [Unknown]
  - Tooth fracture [Unknown]

NARRATIVE: CASE EVENT DATE: 2017
